FAERS Safety Report 10051600 (Version 2)
Quarter: 2014Q2

REPORT INFORMATION
  Report Type: Report from Study
  Country: PH (occurrence: PH)
  Receive Date: 20140401
  Receipt Date: 20140401
  Transmission Date: 20141212
  Serious: Yes (Hospitalization)
  Sender: FDA-Public Use
  Company Number: PH-BRISTOL-MYERS SQUIBB COMPANY-19551985

PATIENT
  Age: 76 Year
  Sex: Female

DRUGS (4)
  1. APIXABAN [Suspect]
     Indication: THROMBOSIS PROPHYLAXIS
     Route: 048
     Dates: start: 20130202
  2. AMLODIPINE [Concomitant]
     Dates: start: 20110226
  3. LOSARTAN [Concomitant]
     Dates: start: 20110128
  4. SPIRONOLACTONE [Concomitant]
     Dates: start: 20110128

REACTIONS (2)
  - Gangrene [Recovered/Resolved]
  - Impaired healing [Unknown]
